FAERS Safety Report 12267298 (Version 1)
Quarter: 2016Q2

REPORT INFORMATION
  Report Type: Report from Study
  Country: US (occurrence: US)
  Receive Date: 20160414
  Receipt Date: 20160414
  Transmission Date: 20160815
  Serious: Yes (Death, Other)
  Sender: FDA-Public Use
  Company Number: US-PFIZER INC-2016197474

PATIENT
  Age: 25 Year
  Sex: Female

DRUGS (4)
  1. APRESOLINE HYDROCHLORIDE [Concomitant]
     Active Substance: HYDRALAZINE HYDROCHLORIDE
     Dosage: UNK
  2. TETRACYCLINE HCL [Suspect]
     Active Substance: TETRACYCLINE HYDROCHLORIDE
     Indication: INFLUENZA
     Dosage: 2 G, DAILY
     Route: 042
     Dates: start: 196201, end: 196201
  3. TETRACYCLINE HCL [Concomitant]
     Active Substance: TETRACYCLINE HYDROCHLORIDE
     Indication: INFLUENZA
     Dosage: 0.5 G, SINGLE
     Route: 030
     Dates: start: 196201, end: 196201
  4. DIGITOXIN [Concomitant]
     Active Substance: DIGITOXIN
     Dosage: UNK

REACTIONS (2)
  - Stillbirth [Unknown]
  - Liver disorder [Fatal]

NARRATIVE: CASE EVENT DATE: 196201
